FAERS Safety Report 5905440-7 (Version None)
Quarter: 2008Q4

REPORT INFORMATION
  Report Type: 
  Country: None (occurrence: None)
  Receive Date: 20081001
  Receipt Date: 20081001
  Transmission Date: 20090506
  Serious: Yes (Other)
  Sender: FDA-Public Use
  Company Number: None

PATIENT
  Age: 31 Year
  Sex: Female
  Weight: 58.9676 kg

DRUGS (1)
  1. SENSORCAINE [Suspect]
     Indication: EPIDURAL ANAESTHESIA
     Dosage: 0.15%/125ML 12 CC/HR EPIDURAL
     Route: 008
     Dates: start: 20080925, end: 20080925

REACTIONS (4)
  - CSF GLUCOSE DECREASED [None]
  - MENINGITIS [None]
  - POST PROCEDURAL COMPLICATION [None]
  - POSTPARTUM DISORDER [None]
